FAERS Safety Report 4951714-6 (Version None)
Quarter: 2006Q1

REPORT INFORMATION
  Report Type: 
  Country: None (occurrence: None)
  Receive Date: 20060323
  Receipt Date: 20060314
  Transmission Date: 20060701
  Serious: Yes (Hospitalization)
  Sender: FDA-Public Use
  Company Number: US-GLAXOSMITHKLINE-A0595984B

PATIENT
  Age: 72 Year
  Sex: Female
  Weight: 83.2 kg

DRUGS (2)
  1. TOPOTECAN HYDROCHLORIDE [Suspect]
     Indication: OVARIAN CANCER
     Dosage: 3MGM2 CYCLIC
     Route: 042
     Dates: start: 20051220
  2. CARBOPLATIN [Suspect]
     Indication: OVARIAN CANCER
     Dosage: 325MG CYCLIC
     Route: 042
     Dates: start: 20051220

REACTIONS (4)
  - DYSURIA [None]
  - ENTEROVESICAL FISTULA [None]
  - FAECALURIA [None]
  - PURULENT DISCHARGE [None]
